FAERS Safety Report 8116309-4 (Version None)
Quarter: 2012Q1

REPORT INFORMATION
  Report Type: 
  Country: None (occurrence: None)
  Receive Date: 20120206
  Receipt Date: 20100909
  Transmission Date: 20120608
  Serious: Yes (Hospitalization)
  Sender: FDA-Public Use
  Company Number: US-GLAXOSMITHKLINE-A0880703A

PATIENT
  Age: 71 Year
  Sex: Female
  Weight: 50 kg

DRUGS (12)
  1. PHENERGAN [Concomitant]
     Dosage: 26MG AS REQUIRED
     Route: 048
     Dates: start: 20100816
  2. WELLBUTRIN [Concomitant]
     Dosage: 100MG TWICE PER DAY
     Route: 048
     Dates: start: 20100315
  3. HYCODAN [Concomitant]
     Dosage: 5ML FOUR TIMES PER DAY
     Route: 048
     Dates: start: 20091216
  4. LOMOTIL [Concomitant]
     Route: 048
     Dates: start: 20100820
  5. VOTRIENT [Suspect]
     Indication: NON-SMALL CELL LUNG CANCER
     Dosage: 600MG PER DAY
     Route: 048
     Dates: start: 20100723
  6. COMPAZINE [Concomitant]
     Route: 048
     Dates: start: 20100816
  7. ALBUTEROL SULFATE [Concomitant]
     Dosage: 2PUFF FOUR TIMES PER DAY
     Route: 055
     Dates: start: 20100723
  8. QUETIAPINE FUMARATE [Concomitant]
     Route: 048
     Dates: start: 20100707
  9. ALPRAZOLAM [Concomitant]
     Dosage: 1MG THREE TIMES PER DAY
     Route: 048
     Dates: start: 20100723
  10. ERLOTINIB HYDROCHLORIDE [Suspect]
     Indication: NON-SMALL CELL LUNG CANCER
     Dosage: 150MG PER DAY
     Route: 048
     Dates: start: 20100723
  11. AMLODIPINE BESYLATE [Concomitant]
     Route: 048
     Dates: start: 20100630
  12. PROCARDIA XL [Concomitant]
     Indication: HYPERTENSION
     Dosage: 30MG PER DAY
     Route: 048

REACTIONS (9)
  - DIARRHOEA [None]
  - LACERATION [None]
  - SYNCOPE [None]
  - ORTHOSTATIC HYPOTENSION [None]
  - DEHYDRATION [None]
  - HYPOKALAEMIA [None]
  - LOSS OF CONSCIOUSNESS [None]
  - HYPOVOLAEMIA [None]
  - HYPERTENSION [None]
